APPROVED DRUG PRODUCT: VERAPAMIL HYDROCHLORIDE
Active Ingredient: VERAPAMIL HYDROCHLORIDE
Strength: 40MG
Dosage Form/Route: TABLET;ORAL
Application: A072923 | Product #001
Applicant: WATSON LABORATORIES INC
Approved: Jun 29, 1993 | RLD: No | RS: No | Type: DISCN